FAERS Safety Report 9546503 (Version 1)
Quarter: 2013Q3

REPORT INFORMATION
  Report Type: Spontaneous
  Country: US (occurrence: US)
  Receive Date: 20130923
  Receipt Date: 20130923
  Transmission Date: 20140515
  Serious: No
  Sender: FDA-Public Use
  Company Number: US-ALLERGAN-1208662US

PATIENT
  Age: 79 Year
  Sex: Male

DRUGS (2)
  1. ACUVAIL [Suspect]
     Indication: DRY EYE
     Dosage: UNK UNK, SINGLE
     Route: 047
     Dates: start: 20120620, end: 20120620
  2. REFRESH CELLUVISC SOLUTION [Concomitant]
     Indication: DRY EYE
     Route: 047

REACTIONS (4)
  - Off label use [Unknown]
  - Expired drug administered [Unknown]
  - Eye pain [Unknown]
  - Eye pain [Recovering/Resolving]
